FAERS Safety Report 9464175 (Version 2)
Quarter: 2013Q3

REPORT INFORMATION
  Report Type: Spontaneous
  Country: US (occurrence: US)
  Receive Date: 20130819
  Receipt Date: 20130819
  Transmission Date: 20140515
  Serious: Yes (Hospitalization)
  Sender: FDA-Public Use
  Company Number: US-ROCHE-1238938

PATIENT
  Sex: Female
  Weight: 59.47 kg

DRUGS (3)
  1. PEGASYS [Suspect]
     Indication: CHRONIC HEPATITIS C
     Route: 058
     Dates: start: 20130614
  2. RIBAVIRIN [Suspect]
     Indication: CHRONIC HEPATITIS C
     Dosage: 1000 MG DAILY IN TWO DIVIDED DOSES.?UNKNOWN BRAND
     Route: 048
     Dates: start: 20130614
  3. TELAPREVIR [Suspect]
     Indication: CHRONIC HEPATITIS C
     Route: 065

REACTIONS (12)
  - Stomatitis [Unknown]
  - Tongue eruption [Unknown]
  - Loss of consciousness [Unknown]
  - Nausea [Unknown]
  - Vomiting [Unknown]
  - Asthenia [Unknown]
  - Fatigue [Unknown]
  - Tremor [Unknown]
  - Weight decreased [Unknown]
  - Swelling face [Unknown]
  - Haemoglobin decreased [Unknown]
  - White blood cell count decreased [Unknown]
